FAERS Safety Report 15848948 (Version 1)
Quarter: 2019Q1

REPORT INFORMATION
  Report Type: Spontaneous
  Country: HR (occurrence: HR)
  Receive Date: 20190121
  Receipt Date: 20190121
  Transmission Date: 20190417
  Serious: Yes (Other)
  Sender: FDA-Public Use
  Company Number: HR-TEVA-2019-HR-1001745

PATIENT
  Age: 17 Year
  Sex: Male

DRUGS (4)
  1. B-KOMPLEX [Suspect]
     Active Substance: CALCIUM PANTOTHENATE\NIACINAMIDE\PYRIDOXINE HYDROCHLORIDE\RIBOFLAVIN\THIAMINE HYDROCHLORIDE
     Route: 048
     Dates: start: 20181030, end: 20181030
  2. ANASTROZOL [Suspect]
     Active Substance: ANASTROZOLE
     Route: 048
     Dates: start: 20181030, end: 20181030
  3. RIVOTRIL [Suspect]
     Active Substance: CLONAZEPAM
     Route: 048
     Dates: start: 20181030, end: 20181030
  4. PROPOLIS [Suspect]
     Active Substance: PROPOLIS WAX
     Route: 048
     Dates: start: 20181030, end: 20181030

REACTIONS (2)
  - No adverse event [Unknown]
  - Suicide attempt [Unknown]

NARRATIVE: CASE EVENT DATE: 20181030
